FAERS Safety Report 23898231 (Version 1)
Quarter: 2024Q2

REPORT INFORMATION
  Report Type: Spontaneous
  Country: AU (occurrence: AU)
  Receive Date: 20240524
  Receipt Date: 20240524
  Transmission Date: 20240716
  Serious: Yes (Other)
  Sender: FDA-Public Use
  Company Number: AU-Hill Dermaceuticals, Inc.-2157411

PATIENT
  Age: 76 Year
  Sex: Male

DRUGS (1)
  1. TOLAK [Suspect]
     Active Substance: FLUOROURACIL
     Indication: Bowen^s disease
     Route: 061

REACTIONS (8)
  - Superinfection [Unknown]
  - Off label use [Unknown]
  - Product use in unapproved indication [Unknown]
  - Inflammation [Unknown]
  - Rash [Unknown]
  - Lymphadenopathy [Unknown]
  - Neck mass [Unknown]
  - Condition aggravated [Unknown]
